FAERS Safety Report 9228692 (Version 2)
Quarter: 2013Q2

REPORT INFORMATION
  Report Type: Spontaneous
  Country: US (occurrence: US)
  Receive Date: 20130412
  Receipt Date: 20130515
  Transmission Date: 20140414
  Serious: Yes (Other)
  Sender: FDA-Public Use
  Company Number: US-JNJFOC-20130402516

PATIENT
  Sex: Female

DRUGS (3)
  1. INVEGA [Suspect]
     Indication: BIPOLAR I DISORDER
     Route: 048
  2. SEROQUEL XR [Suspect]
     Indication: BIPOLAR I DISORDER
     Route: 065
     Dates: start: 20130306, end: 2013
  3. SEROQUEL XR [Suspect]
     Indication: BIPOLAR I DISORDER
     Route: 065
     Dates: start: 20130207, end: 2013

REACTIONS (4)
  - Prolactinoma [Not Recovered/Not Resolved]
  - Breast discharge [Unknown]
  - Intentional drug misuse [Unknown]
  - Adverse drug reaction [Unknown]
